FAERS Safety Report 6224110-1 (Version None)
Quarter: 2009Q2

REPORT INFORMATION
  Report Type: 
  Country: None (occurrence: None)
  Receive Date: 20090612
  Receipt Date: 20090319
  Transmission Date: 20091009
  Serious: No
  Sender: FDA-Public Use
  Company Number: US-ABBOTT-09P-163-0561377-00

PATIENT
  Sex: Female
  Weight: 83.99 kg

DRUGS (6)
  1. HUMIRA [Suspect]
     Indication: PSORIASIS
     Route: 058
     Dates: start: 20090220, end: 20090309
  2. HUMIRA [Suspect]
     Route: 058
     Dates: start: 20080116, end: 20090206
  3. HUMIRA [Suspect]
     Route: 058
     Dates: start: 20090309
  4. METFORMIN HYDROCHLORIDE [Concomitant]
     Indication: DRUG USE FOR UNKNOWN INDICATION
     Dosage: NOT TAKEN CONSISTENTLY
  5. ZOCOR [Concomitant]
     Indication: BLOOD CHOLESTEROL
  6. LISINOPRIL [Concomitant]
     Indication: BLOOD PRESSURE

REACTIONS (5)
  - NASOPHARYNGITIS [None]
  - PSORIASIS [None]
  - RASH [None]
  - RESPIRATORY TRACT CONGESTION [None]
  - SWELLING FACE [None]
